FAERS Safety Report 25282448 (Version 1)
Quarter: 2025Q2

REPORT INFORMATION
  Report Type: Spontaneous
  Country: FR (occurrence: FR)
  Receive Date: 20250508
  Receipt Date: 20250508
  Transmission Date: 20250717
  Serious: Yes (Hospitalization, Other)
  Sender: HIKMA
  Company Number: None

PATIENT
  Age: 30 Year
  Sex: Female

DRUGS (2)
  1. ATRACURIUM [Suspect]
     Active Substance: ATRACURIUM
     Indication: Analgesic therapy
     Route: 037
     Dates: start: 20250318, end: 20250318
  2. XYLOCAINE WITH ADRENALINE [EPINEPHRINE BITARTRATE;LIDOCAINE HYDROCHLOR [Concomitant]
     Indication: Product used for unknown indication
     Route: 065

REACTIONS (3)
  - Product administration error [Recovered/Resolved]
  - Product selection error [Recovered/Resolved]
  - Caesarean section [Recovered/Resolved]

NARRATIVE: CASE EVENT DATE: 20250318
